FAERS Safety Report 4429535-2 (Version None)
Quarter: 2004Q3

REPORT INFORMATION
  Report Type: 
  Country: None (occurrence: None)
  Receive Date: 20040819
  Receipt Date: 20040730
  Transmission Date: 20050211
  Serious: Yes (Hospitalization)
  Sender: FDA-Public Use
  Company Number: US-GLAXOSMITHKLINE-A0520372A

PATIENT
  Age: 54 Year
  Sex: Male
  Weight: 76.8 kg

DRUGS (3)
  1. FLOLAN [Suspect]
     Indication: PULMONARY HYPERTENSION
     Dosage: 16NG CONTINUOUS
     Route: 042
     Dates: start: 20030801
  2. INSULIN [Concomitant]
  3. METHADONE HCL [Concomitant]

REACTIONS (2)
  - EOSINOPHIL COUNT INCREASED [None]
  - PURPURA [None]
